FAERS Safety Report 7510076-0 (Version None)
Quarter: 2011Q2

REPORT INFORMATION
  Report Type: 
  Country: None (occurrence: None)
  Receive Date: 20110527
  Receipt Date: 20110523
  Transmission Date: 20111010
  Serious: Yes (Other)
  Sender: FDA-Public Use
  Company Number: US-ABBOTT-11P-163-0728037-00

PATIENT
  Sex: Male
  Weight: 120.31 kg

DRUGS (6)
  1. ALCOHOL [Suspect]
     Indication: PRODUCT USED FOR UNKNOWN INDICATION
     Dates: start: 20091001
  2. PRILOSEC [Concomitant]
     Indication: GASTRITIS
  3. HUMIRA [Suspect]
     Indication: PSORIATIC ARTHROPATHY
     Dates: start: 20080101, end: 20090101
  4. HUMALOG [Concomitant]
     Indication: BLOOD GLUCOSE INCREASED
     Dates: start: 20100101
  5. ZYRTEC [Concomitant]
     Indication: HYPERSENSITIVITY
  6. LEVAMIR [Concomitant]
     Indication: BLOOD GLUCOSE INCREASED
     Dates: start: 20100101

REACTIONS (8)
  - PORTAL HYPERTENSION [None]
  - LIVER INJURY [None]
  - SPLENOMEGALY [None]
  - SPLEEN DISORDER [None]
  - VOMITING [None]
  - DIABETES MELLITUS INADEQUATE CONTROL [None]
  - INCORRECT DRUG ADMINISTRATION DURATION [None]
  - HEPATIC FIBROSIS [None]
